FAERS Safety Report 12049572 (Version 1)
Quarter: 2016Q1

REPORT INFORMATION
  Report Type: Spontaneous
  Country: US (occurrence: US)
  Receive Date: 20160209
  Receipt Date: 20160209
  Transmission Date: 20160526
  Serious: No
  Sender: FDA-Public Use
  Company Number: US-ABBVIE-15P-163-1420711-00

PATIENT

DRUGS (1)
  1. HUMIRA [Suspect]
     Active Substance: ADALIMUMAB
     Indication: PRODUCT USED FOR UNKNOWN INDICATION
     Route: 058

REACTIONS (6)
  - Feeding disorder [Unknown]
  - Decreased appetite [Unknown]
  - Weight decreased [Unknown]
  - Gastrointestinal pain [Unknown]
  - Gastrointestinal obstruction [Unknown]
  - Abdominal pain [Unknown]
